FAERS Safety Report 6435056-8 (Version None)
Quarter: 2009Q4

REPORT INFORMATION
  Report Type: 
  Country: None (occurrence: None)
  Receive Date: 20091110
  Receipt Date: 20091106
  Transmission Date: 20100525
  Serious: Yes (Death, Hospitalization)
  Sender: FDA-Public Use
  Company Number: PHHY2009MX42503

PATIENT
  Sex: Female

DRUGS (1)
  1. DIOVAN HCT [Suspect]
     Indication: HYPERTENSION
     Dosage: 0.5 TABLET (80/12.5 MG)/DAY
     Route: 048
     Dates: start: 20080401

REACTIONS (4)
  - DIABETES MELLITUS INADEQUATE CONTROL [None]
  - HYPERTENSION [None]
  - MULTI-ORGAN FAILURE [None]
  - RESPIRATORY ARREST [None]
